FAERS Safety Report 4692865-3 (Version None)
Quarter: 2005Q2

REPORT INFORMATION
  Report Type: 
  Country: None (occurrence: None)
  Receive Date: 20050617
  Receipt Date: 20050610
  Transmission Date: 20051028
  Serious: Yes (Hospitalization)
  Sender: FDA-Public Use
  Company Number: US-BRISTOL-MYERS SQUIBB COMPANY-13000666

PATIENT
  Age: 68 Year
  Sex: Male
  Weight: 90 kg

DRUGS (3)
  1. CETUXIMAB [Suspect]
     Indication: NON-SMALL CELL LUNG CANCER
     Dosage: 4TH COURSE. START DATE 1ST COURSE 29-DEC-04, START DATE 4TH CORUSE 10-MAR-05 (TOTAL DOSE 1305 MG).
     Dates: start: 20050324, end: 20050324
  2. CARBOPLATIN [Suspect]
     Indication: NON-SMALL CELL LUNG CANCER
     Dosage: 4TH COURSE (START DATE 10-MAR-05).START DATE COURSE 1: 29-DEC-05.GIVEN AUC=6 EVERY 21 DAYS X4CYCLES.
     Dates: start: 20050310, end: 20050310
  3. PACLITAXEL [Suspect]
     Indication: NON-SMALL CELL LUNG CANCER
     Dosage: 4TH COURSE(START DATE 10-MAR-05).START DATE 1ST COURSE 29-DEC-04.GIVEN 225 MG/M2 Q 21DAYS X 4CYCLES.
     Dates: start: 20050310, end: 20050310

REACTIONS (5)
  - CLOSTRIDIUM COLITIS [None]
  - DEHYDRATION [None]
  - NAUSEA [None]
  - PULMONARY EMBOLISM [None]
  - VOMITING [None]
